FAERS Safety Report 9386266 (Version 3)
Quarter: 2013Q3

REPORT INFORMATION
  Report Type: Spontaneous
  Country: JP (occurrence: JP)
  Receive Date: 20130708
  Receipt Date: 20130717
  Transmission Date: 20140515
  Serious: Yes (Death)
  Sender: FDA-Public Use
  Company Number: JP-009507513-1307JPN002074

PATIENT
  Sex: Female

DRUGS (7)
  1. TRYPTANOL [Suspect]
     Route: 048
  2. DEPAKENE [Suspect]
     Route: 048
  3. BLOPRESS [Suspect]
     Route: 048
  4. DEPROMEL [Suspect]
     Route: 048
  5. CYMBALTA [Suspect]
     Route: 048
  6. MANIDIPINE HYDROCHLORIDE [Suspect]
     Route: 048
  7. BAYASPIRIN [Suspect]
     Route: 048

REACTIONS (1)
  - Overdose [Fatal]
